FAERS Safety Report 11714723 (Version 1)
Quarter: 2015Q4

REPORT INFORMATION
  Report Type: Other
  Country: GB (occurrence: GB)
  Receive Date: 20151109
  Receipt Date: 20151109
  Transmission Date: 20160304
  Serious: Yes (Other)
  Sender: FDA-Public Use
  Company Number: GB-MYLANLABS-2015M1037209

PATIENT

DRUGS (4)
  1. EPIRUBICIN [Suspect]
     Active Substance: EPIRUBICIN
     Indication: GASTRIC CANCER
     Dosage: 100 MG, UNK (MOST RECENT DOSE PRIOR TO SAE: 11/JAN/2013)
     Route: 042
     Dates: start: 20121130
  2. AVASTIN [Suspect]
     Active Substance: BEVACIZUMAB
     Indication: GASTRIC CANCER
     Dosage: 850 MG, UNK (MOST RECENT DOSE PRIOR TO SAE: 11/JAN/2013)
     Route: 042
     Dates: start: 20121130
  3. XELODA [Suspect]
     Active Substance: CAPECITABINE
     Indication: GASTRIC CANCER
     Dosage: MOST RECENT DOSE PRIOR TO SAE: 02/FEB/2013 54600/21 DAYS
     Route: 048
     Dates: start: 20121130
  4. CISPLATIN. [Suspect]
     Active Substance: CISPLATIN
     Indication: GASTRIC CANCER
     Dosage: 120 MG, UNK (MOST RECENT DOSE PRIOR TO SAE: 11/JAN/2013)
     Route: 042
     Dates: start: 20121130

REACTIONS (1)
  - Pulmonary embolism [Recovered/Resolved]

NARRATIVE: CASE EVENT DATE: 20130205
